FAERS Safety Report 5641680-2 (Version None)
Quarter: 2008Q1

REPORT INFORMATION
  Report Type: 
  Country: None (occurrence: None)
  Receive Date: 20080227
  Receipt Date: 20080222
  Transmission Date: 20080703
  Serious: Yes (Other)
  Sender: FDA-Public Use
  Company Number: GB-ABBOTT-08P-167-0434097-00

PATIENT
  Sex: Female
  Weight: 44.5 kg

DRUGS (3)
  1. REDUCTIL 10MG [Suspect]
     Indication: WEIGHT DECREASED
     Route: 048
     Dates: start: 20070906, end: 20070920
  2. CYCLO-PROGYNOVA [Concomitant]
     Indication: DRUG USE FOR UNKNOWN INDICATION
     Route: 048
     Dates: start: 20060201
  3. SPASMONAL FORTE [Concomitant]
     Indication: DRUG USE FOR UNKNOWN INDICATION
     Route: 048
     Dates: start: 20070501

REACTIONS (3)
  - ANXIETY [None]
  - BLOOD PRESSURE INCREASED [None]
  - TONGUE DRY [None]
